FAERS Safety Report 14091845 (Version 1)
Quarter: 2017Q4

REPORT INFORMATION
  Report Type: Spontaneous
  Country: US (occurrence: None)
  Receive Date: 20171014
  Receipt Date: 20171014
  Transmission Date: 20180321
  Serious: Yes (Death, Hospitalization)
  Sender: FDA-Public Use
  Company Number: None

PATIENT
  Age: 70 Year
  Sex: Male

DRUGS (1)
  1. THALOMID [Suspect]
     Active Substance: THALIDOMIDE
     Indication: PLASMA CELL MYELOMA
     Route: 048
     Dates: start: 20150504, end: 20150513

REACTIONS (11)
  - Bacterial translocation [None]
  - Enteritis [None]
  - Ileus [None]
  - Septic shock [None]
  - Cardiac failure [None]
  - Sepsis [None]
  - Acute kidney injury [None]
  - Dialysis [None]
  - Therapy cessation [None]
  - Neutropenia [None]
  - Atrial fibrillation [None]

NARRATIVE: CASE EVENT DATE: 20150518
